FAERS Safety Report 9374380 (Version 1)
Quarter: 2013Q2

REPORT INFORMATION
  Report Type: Spontaneous
  Country: IT (occurrence: IT)
  Receive Date: 20130628
  Receipt Date: 20130628
  Transmission Date: 20140414
  Serious: Yes (Hospitalization)
  Sender: FDA-Public Use
  Company Number: PHHY2013IT065998

PATIENT
  Sex: Female

DRUGS (1)
  1. TEGRETOL [Suspect]
     Indication: EPILEPSY
     Dosage: 800 MG, DAILY
     Route: 048
     Dates: start: 20090815, end: 20130320

REACTIONS (3)
  - Psychomotor skills impaired [Recovering/Resolving]
  - Hyponatraemia [Recovering/Resolving]
  - Cognitive disorder [Recovering/Resolving]
